FAERS Safety Report 16737886 (Version 7)
Quarter: 2020Q3

REPORT INFORMATION
  Report Type: Report from Study
  Country: US (occurrence: US)
  Receive Date: 20190824
  Receipt Date: 20200723
  Transmission Date: 20201102
  Serious: Yes (Hospitalization, Other)
  Sender: FDA-Public Use
  Company Number: US-AMGEN-USACT2019133790

PATIENT
  Age: 67 Year
  Sex: Male

DRUGS (10)
  1. DARBEPOETIN ALFA [Suspect]
     Active Substance: DARBEPOETIN ALFA
     Indication: ANAEMIA
     Dosage: 45 MICROGRAM, Q4WK
     Route: 058
     Dates: start: 20190722, end: 20190724
  2. SITAGLIPTIN [Concomitant]
     Active Substance: SITAGLIPTIN
     Dosage: UNK
     Dates: start: 201901
  3. AMLODIPINE [Concomitant]
     Active Substance: AMLODIPINE BESYLATE
     Dosage: UNK
     Dates: start: 201903
  4. FUROSEMIDE. [Concomitant]
     Active Substance: FUROSEMIDE
     Dosage: UNK
     Dates: start: 201903
  5. FUROSEMIDE. [Concomitant]
     Active Substance: FUROSEMIDE
     Dosage: 40 MICROGRAM/SQ. METER, ONCE
     Route: 042
     Dates: start: 20190727
  6. PATIROMER [Concomitant]
     Active Substance: PATIROMER
     Dosage: UNK
     Dates: start: 2018
  7. CARVEDILOL. [Concomitant]
     Active Substance: CARVEDILOL
     Dosage: UNK
     Dates: start: 2018
  8. ELIQUIS [Concomitant]
     Active Substance: APIXABAN
     Dosage: UNK
     Dates: start: 201904
  9. CALCITRIOL. [Concomitant]
     Active Substance: CALCITRIOL
     Dosage: UNK
     Dates: start: 201902
  10. VITAMIN D [ERGOCALCIFEROL] [Concomitant]
     Active Substance: ERGOCALCIFEROL
     Dosage: UNK
     Dates: start: 2019

REACTIONS (1)
  - Cardiac arrest [Recovering/Resolving]

NARRATIVE: CASE EVENT DATE: 20190725
